FAERS Safety Report 6344292-0 (Version None)
Quarter: 2009Q3

REPORT INFORMATION
  Report Type: 
  Country: None (occurrence: None)
  Receive Date: 20090821
  Receipt Date: 20090422
  Transmission Date: 20100115
  Serious: No
  Sender: FDA-Public Use
  Company Number: 8045160

PATIENT
  Age: 41 Year
  Sex: Female
  Weight: 70.3 kg

DRUGS (3)
  1. CIMZIA [Suspect]
     Indication: CROHN'S DISEASE
     Dosage: 400 MG SC
     Route: 058
     Dates: start: 20090225
  2. PREDNISONE [Concomitant]
  3. LOW-OGESTREL-21 [Concomitant]

REACTIONS (5)
  - HYPOAESTHESIA [None]
  - MYALGIA [None]
  - OROPHARYNGEAL PAIN [None]
  - PARAESTHESIA [None]
  - UPPER RESPIRATORY TRACT CONGESTION [None]
